FAERS Safety Report 24611480 (Version 1)
Quarter: 2024Q4

REPORT INFORMATION
  Report Type: Spontaneous
  Country: US (occurrence: US)
  Receive Date: 20241113
  Receipt Date: 20241113
  Transmission Date: 20250115
  Serious: Yes (Disabling, Other)
  Sender: SANDOZ
  Company Number: US-SANDOZ-SDZ2024US093935

PATIENT
  Age: 74 Year
  Sex: Female
  Weight: 130 kg

DRUGS (1)
  1. RECLAST [Suspect]
     Active Substance: ZOLEDRONIC ACID
     Indication: Osteopenia
     Dosage: 5 MG, QD, ONE SINGLE DOSE
     Route: 042
     Dates: start: 20240715, end: 20240715

REACTIONS (9)
  - Brain fog [Not Recovered/Not Resolved]
  - Myalgia [Not Recovered/Not Resolved]
  - Headache [Not Recovered/Not Resolved]
  - Hypotension [Not Recovered/Not Resolved]
  - Dizziness [Not Recovered/Not Resolved]
  - Asthenia [Not Recovered/Not Resolved]
  - Dyspnoea [Not Recovered/Not Resolved]
  - Nausea [Not Recovered/Not Resolved]
  - Somnolence [Not Recovered/Not Resolved]

NARRATIVE: CASE EVENT DATE: 20240715
